FAERS Safety Report 11173780 (Version 2)
Quarter: 2015Q2

REPORT INFORMATION
  Report Type: Report from Study
  Country: US (occurrence: US)
  Receive Date: 20150609
  Receipt Date: 20150612
  Transmission Date: 20150821
  Serious: Yes (Other)
  Sender: FDA-Public Use
  Company Number: US-009507513-1506USA002865

PATIENT
  Age: 58 Year

DRUGS (3)
  1. KYPROLIS [Suspect]
     Active Substance: CARFILZOMIB
     Indication: PLASMA CELL MYELOMA
     Dosage: 54 MG, ONCE A WEEK, 24 CYCLES
     Route: 042
     Dates: start: 20140630, end: 20141014
  2. CYTOXAN [Suspect]
     Active Substance: CYCLOPHOSPHAMIDE
     Indication: PLASMA CELL MYELOMA
     Dosage: 300 MG, ONCE A WEEK, 13 CYCLES
     Route: 042
     Dates: start: 20140630, end: 20141013
  3. DECADRON [Suspect]
     Active Substance: DEXAMETHASONE
     Indication: PLASMA CELL MYELOMA
     Dosage: DOSE OR AMOUNT: 4, ONCE A WEEK
     Route: 042
     Dates: start: 20140630, end: 20141014

REACTIONS (2)
  - Confusional state [Unknown]
  - Dizziness [Unknown]

NARRATIVE: CASE EVENT DATE: 20140727
